FAERS Safety Report 6635973-X (Version None)
Quarter: 2010Q2

REPORT INFORMATION
  Report Type: 
  Country: None (occurrence: None)
  Receive Date: 20100225
  Receipt Date: 20090311
  Transmission Date: 20101027
  Serious: Yes (Hospitalization, Other)
  Sender: FDA-Public Use
  Company Number: US-JNJFOC-20090304218

PATIENT
  Age: 30 Year
  Sex: Female
  Weight: 82 kg

DRUGS (8)
  1. MOTRIN [Suspect]
     Indication: PREMEDICATION
  2. REBIF [Suspect]
     Indication: MULTIPLE SCLEROSIS
     Dosage: 44 UG, 3 IN 1 WEEK, SUBCUTANEOUS
     Route: 058
     Dates: start: 20081205
  3. METHADONE HCL [Concomitant]
  4. EFFEXOR [Concomitant]
  5. TRAZODONE HCL [Concomitant]
  6. VALIUM [Concomitant]
  7. PROVIGIL [Concomitant]
  8. PREVACID [Concomitant]

REACTIONS (1)
  - GASTROINTESTINAL ULCER HAEMORRHAGE [None]
